FAERS Safety Report 10024536 (Version 1)
Quarter: 2014Q1

REPORT INFORMATION
  Report Type: Spontaneous
  Country: US (occurrence: US)
  Receive Date: 20140320
  Receipt Date: 20140320
  Transmission Date: 20141002
  Serious: No
  Sender: FDA-Public Use
  Company Number: US-B.I. PHARMACEUTICALS,INC./RIDGEFIELD-2014-BI-11283BP

PATIENT
  Sex: Male

DRUGS (2)
  1. ZANTAC 150 (RANITIDINE HYDROCHLORIDE) [Suspect]
     Indication: OROPHARYNGEAL PAIN
     Dosage: 150 MG
     Route: 048
     Dates: start: 20140308
  2. NEXIUM [Concomitant]
     Route: 065

REACTIONS (1)
  - Off label use [Unknown]
